FAERS Safety Report 4509956-X (Version None)
Quarter: 2004Q4

REPORT INFORMATION
  Report Type: 
  Country: None (occurrence: None)
  Receive Date: 20041119
  Receipt Date: 20041001
  Transmission Date: 20050328
  Serious: Yes (Hospitalization)
  Sender: FDA-Public Use
  Company Number: 2004243778US

PATIENT
  Age: 81 Year
  Sex: Female
  Weight: 85.7 kg

DRUGS (9)
  1. DETROL LA [Suspect]
     Indication: URINARY INCONTINENCE
     Dosage: 4 MG , BID
     Dates: start: 20030101
  2. PREMARIN [Concomitant]
  3. ULTRAM [Concomitant]
  4. ARICEPT [Concomitant]
  5. NEURONTIN [Concomitant]
  6. SYNTHROID [Concomitant]
  7. MELATONIN (MELATONIN) [Concomitant]
  8. AVANDAMET [Concomitant]
  9. NITROSTAT [Concomitant]

REACTIONS (5)
  - BACTERIAL INFECTION [None]
  - GASTRIC INFECTION [None]
  - NAUSEA [None]
  - NERVOUSNESS [None]
  - URINARY INCONTINENCE [None]
